FAERS Safety Report 8965428 (Version 1)
Quarter: 2012Q4

REPORT INFORMATION
  Report Type: 
  Country: CN (occurrence: CN)
  Receive Date: 20121213
  Receipt Date: 20121213
  Transmission Date: 20130627
  Serious: Yes (Other)
  Sender: FDA-Public Use
  Company Number: PHHY2012CN108837

PATIENT
  Age: 78 Year
  Sex: Male
  Weight: 62.5 kg

DRUGS (1)
  1. TEGRETOL [Suspect]
     Indication: NEURALGIA
     Dosage: 0.2 g, BID
     Route: 048
     Dates: start: 20111110, end: 20111113

REACTIONS (5)
  - Schizophreniform disorder [Recovering/Resolving]
  - Hallucination [Recovering/Resolving]
  - Persecutory delusion [Unknown]
  - Frustration [Recovered/Resolved]
  - Mental disorder [Recovering/Resolving]
